FAERS Safety Report 8483299-4 (Version None)
Quarter: 2012Q3

REPORT INFORMATION
  Report Type: 
  Country: None (occurrence: None)
  Receive Date: 20120702
  Receipt Date: 20120616
  Transmission Date: 20120928
  Serious: No
  Sender: FDA-Public Use
  Company Number: US-ASTRAZENECA-2012SE40581

PATIENT
  Age: 54 Year
  Sex: Female
  Weight: 104.3 kg

DRUGS (7)
  1. BLOOD PRESSURE PILL [Concomitant]
     Indication: HYPERTENSION
  2. POTASSIUM [Concomitant]
  3. VICTOZA [Concomitant]
  4. BLOOD SUGAR PILL [Concomitant]
     Indication: DIABETES MELLITUS
  5. WATER PILL [Concomitant]
  6. CRESTOR [Suspect]
     Indication: BLOOD CHOLESTEROL INCREASED
     Route: 048
     Dates: start: 20120606
  7. VERAMIST [Concomitant]

REACTIONS (4)
  - VISION BLURRED [None]
  - FEELING JITTERY [None]
  - NERVOUSNESS [None]
  - DIZZINESS [None]
